FAERS Safety Report 22050583 (Version 4)
Quarter: 2023Q2

REPORT INFORMATION
  Report Type: Other
  Country: US (occurrence: None)
  Receive Date: 20230301
  Receipt Date: 20230425
  Transmission Date: 20230722
  Serious: Yes (Other)
  Sender: FDA-Public Use
  Company Number: US-ROCHE-3294665

PATIENT
  Age: 76 Year
  Sex: Male

DRUGS (6)
  1. ESBRIET [Suspect]
     Active Substance: PIRFENIDONE
     Indication: Bronchiectasis
     Dosage: TAKE 3 TABLET BY MOUTH 3 TIMES A DAY.?EXPIRY DATE: 31-DEC-2025
     Route: 048
  2. ESBRIET [Suspect]
     Active Substance: PIRFENIDONE
     Indication: Pulmonary fibrosis
  3. ESBRIET [Suspect]
     Active Substance: PIRFENIDONE
     Indication: Idiopathic pulmonary fibrosis
  4. ESBRIET [Suspect]
     Active Substance: PIRFENIDONE
     Indication: Dyspnoea
  5. ESBRIET [Suspect]
     Active Substance: PIRFENIDONE
     Indication: Abnormal loss of weight
  6. OXYGEN [Concomitant]
     Active Substance: OXYGEN

REACTIONS (6)
  - Dyspnoea [Unknown]
  - Loss of consciousness [Unknown]
  - Weight decreased [Unknown]
  - Feeding disorder [Unknown]
  - Speech disorder [Unknown]
  - Decreased appetite [Unknown]
